FAERS Safety Report 4867847-9 (Version None)
Quarter: 2005Q4

REPORT INFORMATION
  Report Type: 
  Country: None (occurrence: None)
  Receive Date: 20051228
  Receipt Date: 20051223
  Transmission Date: 20060501
  Serious: Yes (Other)
  Sender: FDA-Public Use
  Company Number: GB-MERCK-0512GBR00140

PATIENT
  Age: 63 Year
  Sex: Male
  Weight: 93 kg

DRUGS (9)
  1. ZETIA [Suspect]
     Route: 048
     Dates: start: 20050201, end: 20050901
  2. ASPIRIN [Concomitant]
     Route: 065
     Dates: start: 20040101
  3. ATENOLOL [Concomitant]
     Route: 048
     Dates: start: 20040101
  4. BENDROFLUMETHIAZIDE [Concomitant]
     Route: 048
     Dates: start: 20030101
  5. FELODIPINE [Concomitant]
     Route: 048
     Dates: start: 20050101
  6. OMEGA-3 ACID ETHYL ESTERS [Concomitant]
     Route: 048
     Dates: start: 20040101
  7. INSULIN HUMAN [Concomitant]
     Route: 058
     Dates: start: 20010101
  8. INSULIN HUMAN, ISOPHANE [Concomitant]
     Route: 058
     Dates: start: 20010101
  9. RAMIPRIL [Concomitant]
     Route: 048
     Dates: start: 20030101

REACTIONS (1)
  - JAUNDICE CHOLESTATIC [None]
